FAERS Safety Report 13886092 (Version 1)
Quarter: 2017Q3

REPORT INFORMATION
  Report Type: Spontaneous
  Country: CN (occurrence: CN)
  Receive Date: 20170821
  Receipt Date: 20170821
  Transmission Date: 20171127
  Serious: Yes (Other)
  Sender: FDA-Public Use
  Company Number: CN-ASTRAZENECA-2017SE83798

PATIENT
  Age: 2275 Day
  Sex: Female

DRUGS (11)
  1. BUDESONIDE. [Suspect]
     Active Substance: BUDESONIDE
     Indication: BRONCHITIS
     Route: 055
     Dates: start: 20170404, end: 20170405
  2. HERBAL COUGH AND COLD PREPARATION NOS [Suspect]
     Active Substance: HERBALS
     Indication: BRONCHITIS
     Route: 048
     Dates: start: 20170404, end: 20170405
  3. TERBUTALINE SULFATE. [Suspect]
     Active Substance: TERBUTALINE SULFATE
     Indication: PNEUMONIA MYCOPLASMAL
     Route: 055
     Dates: start: 20170404, end: 20170405
  4. AMBROXOL HYDROCHLORIDE [Suspect]
     Active Substance: AMBROXOL HYDROCHLORIDE
     Indication: DRUG THERAPY
     Route: 048
     Dates: start: 20170405, end: 20170407
  5. HERBAL COUGH AND COLD PREPARATION NOS [Suspect]
     Active Substance: HERBALS
     Indication: BRONCHITIS
     Dosage: 2 POUCH TID
     Route: 048
     Dates: start: 20170404, end: 20170405
  6. SODIUM CHLORIDE. [Concomitant]
     Active Substance: SODIUM CHLORIDE
     Indication: BRONCHITIS
     Route: 055
     Dates: start: 20170404, end: 20170405
  7. BUDESONIDE. [Suspect]
     Active Substance: BUDESONIDE
     Indication: PNEUMONIA MYCOPLASMAL
     Route: 055
     Dates: start: 20170404, end: 20170405
  8. SODIUM CHLORIDE. [Concomitant]
     Active Substance: SODIUM CHLORIDE
     Indication: PNEUMONIA MYCOPLASMAL
     Route: 055
     Dates: start: 20170404, end: 20170405
  9. HERBAL COUGH AND COLD PREPARATION NOS [Suspect]
     Active Substance: HERBALS
     Indication: PNEUMONIA MYCOPLASMAL
     Dosage: 2 POUCH TID
     Route: 048
     Dates: start: 20170404, end: 20170405
  10. TERBUTALINE SULFATE. [Suspect]
     Active Substance: TERBUTALINE SULFATE
     Indication: BRONCHITIS
     Route: 055
     Dates: start: 20170404, end: 20170405
  11. HERBAL COUGH AND COLD PREPARATION NOS [Suspect]
     Active Substance: HERBALS
     Indication: PNEUMONIA MYCOPLASMAL
     Route: 048
     Dates: start: 20170404, end: 20170405

REACTIONS (4)
  - Pruritus [Not Recovered/Not Resolved]
  - Rash maculo-papular [Not Recovered/Not Resolved]
  - Flushing [Not Recovered/Not Resolved]
  - Oropharyngeal pain [Not Recovered/Not Resolved]

NARRATIVE: CASE EVENT DATE: 20170410
